FAERS Safety Report 25656495 (Version 1)
Quarter: 2025Q3

REPORT INFORMATION
  Report Type: Spontaneous
  Country: GB (occurrence: GB)
  Receive Date: 20250807
  Receipt Date: 20250807
  Transmission Date: 20251020
  Serious: Yes (Other)
  Sender: ELI LILLY AND COMPANY
  Company Number: None

PATIENT
  Age: 46 Year
  Sex: Female
  Weight: 129 kg

DRUGS (2)
  1. MOUNJARO [Suspect]
     Active Substance: TIRZEPATIDE
     Indication: Weight control
     Route: 065
     Dates: start: 20250727
  2. LEVOTHYROXINE [Concomitant]
     Active Substance: LEVOTHYROXINE
     Indication: Hypothyroidism
     Dates: start: 2022

REACTIONS (3)
  - Lymphadenopathy [Not Recovered/Not Resolved]
  - Tenderness [Unknown]
  - Swelling face [Unknown]

NARRATIVE: CASE EVENT DATE: 20250728
